FAERS Safety Report 8314886-1 (Version None)
Quarter: 2012Q1

REPORT INFORMATION
  Report Type: 
  Country: None (occurrence: None)
  Receive Date: 20120315
  Receipt Date: 20110503
  Transmission Date: 20120608
  Serious: Yes (Hospitalization)
  Sender: FDA-Public Use
  Company Number: PHHY2011US37442

PATIENT
  Age: 56 Year
  Sex: Female

DRUGS (9)
  1. ALLEGRA [Concomitant]
  2. GILENYA [Suspect]
     Indication: MULTIPLE SCLEROSIS
     Dosage: 0.5 MG, QD, ORAL
     Route: 048
     Dates: start: 20110427
  3. FAMPRIDINE (FAMPRIDINE) [Concomitant]
  4. FOSAMAX [Concomitant]
  5. BETASERON [Suspect]
  6. BUSPAR [Concomitant]
  7. NITROFURAN (NITROFURANTOIN) [Concomitant]
  8. ESTRADIOL [Concomitant]
  9. ROPINIROLE [Concomitant]

REACTIONS (2)
  - HEART RATE DECREASED [None]
  - INFECTION [None]
